FAERS Safety Report 8383233-1 (Version None)
Quarter: 2012Q2

REPORT INFORMATION
  Report Type: 
  Country: None (occurrence: None)
  Receive Date: 20120524
  Receipt Date: 20120516
  Transmission Date: 20120825
  Serious: Yes (Hospitalization)
  Sender: FDA-Public Use
  Company Number: US-ASTRAZENECA-2011SE32236

PATIENT
  Age: 49 Year
  Sex: Female

DRUGS (24)
  1. NEXIUM [Suspect]
     Indication: GASTROOESOPHAGEAL REFLUX DISEASE
     Route: 048
     Dates: start: 20010101, end: 20110101
  2. NEXIUM [Suspect]
     Dosage: EVERY DAY
     Route: 048
     Dates: start: 20030101
  3. NEXIUM [Suspect]
     Route: 048
     Dates: start: 20100211
  4. HYDROCHLOROTHIAZIDE [Concomitant]
     Indication: HYPERTENSION
  5. EXFORGE [Concomitant]
     Dosage: 5/320 ONE TAB PO DAILY
     Route: 048
     Dates: start: 20100211
  6. NEXIUM [Suspect]
     Route: 048
     Dates: start: 20100226
  7. ZOLPIDEM [Concomitant]
     Dates: start: 20100309
  8. HYDROCO/ACETAMIN [Concomitant]
     Dosage: 10-325 MG
     Route: 048
     Dates: start: 20100325
  9. METOPROLOL [Concomitant]
     Route: 048
     Dates: start: 20100211
  10. METHOCARBAMOL [Concomitant]
     Route: 048
     Dates: start: 20100211
  11. CRESTOR [Concomitant]
     Indication: BLOOD CHOLESTEROL INCREASED
  12. ZOLPIDEM [Concomitant]
     Indication: SLEEP DISORDER
  13. HYDROCODONE [Concomitant]
     Indication: PAIN
     Dosage: AS NEEDED
  14. SIMVASTATIN [Concomitant]
     Dosage: 10/20MG ONE TABLET PO DAILY
     Route: 048
     Dates: start: 20100211
  15. NITRIPTYLINE [Concomitant]
     Dates: start: 20100211
  16. HYDROCODONE [Concomitant]
     Dates: start: 20100323
  17. HYDROCODONE [Concomitant]
     Dosage: 10/325 MG ONE TA PO DAILY
     Route: 048
     Dates: start: 20100211
  18. METOPROLOL [Concomitant]
     Route: 048
     Dates: start: 20100325
  19. HYDROCHLOROTHIAZIDE [Concomitant]
     Route: 048
     Dates: start: 20100211
  20. AMITRIPTYLINE HCL [Concomitant]
     Indication: DEPRESSION
  21. OMEPRAZOLE CR [Concomitant]
     Dates: start: 20010101, end: 20110101
  22. HYDROCO/ACETAMIN [Concomitant]
     Dosage: ONE OR TWO TAB PO DAILY
     Route: 048
     Dates: start: 20100211
  23. NEURONTIN [Concomitant]
     Route: 048
     Dates: start: 20100211
  24. PHENERGAN [Concomitant]
     Route: 048
     Dates: start: 20100211

REACTIONS (6)
  - SCIATIC NERVE INJURY [None]
  - ARTHRITIS [None]
  - ANKLE FRACTURE [None]
  - WALKING AID USER [None]
  - GLAUCOMA [None]
  - DEPRESSION [None]
